FAERS Safety Report 6994141-2 (Version None)
Quarter: 2010Q3

REPORT INFORMATION
  Report Type: 
  Country: None (occurrence: None)
  Receive Date: 20100917
  Receipt Date: 20100716
  Transmission Date: 20110219
  Serious: No
  Sender: FDA-Public Use
  Company Number: US-ASTRAZENECA-2010SE33445

PATIENT
  Age: 583 Month
  Sex: Female
  Weight: 68.9 kg

DRUGS (7)
  1. SEROQUEL XR [Suspect]
     Indication: BIPOLAR DISORDER
     Route: 048
     Dates: start: 20100101, end: 20100601
  2. SEROQUEL XR [Suspect]
     Indication: MAJOR DEPRESSION
     Route: 048
     Dates: start: 20100101, end: 20100601
  3. SEROQUEL XR [Suspect]
     Indication: BORDERLINE PERSONALITY DISORDER
     Route: 048
     Dates: start: 20100101, end: 20100601
  4. SEROQUEL XR [Suspect]
     Indication: POST CONCUSSION SYNDROME
     Route: 048
     Dates: start: 20100101, end: 20100601
  5. PRISTIQ [Concomitant]
     Route: 048
  6. VESICARE [Concomitant]
     Route: 048
  7. CLONAZEPAM [Concomitant]
     Route: 048

REACTIONS (7)
  - ANXIETY [None]
  - CONCUSSION [None]
  - DEPRESSION [None]
  - DRUG DOSE OMISSION [None]
  - FALL [None]
  - HEAD INJURY [None]
  - HEADACHE [None]
